FAERS Safety Report 18668743 (Version 1)
Quarter: 2020Q4

REPORT INFORMATION
  Report Type: Spontaneous
  Country: US (occurrence: US)
  Receive Date: 20201223
  Receipt Date: 20201223
  Transmission Date: 20210114
  Serious: Yes (Death)
  Sender: FDA-Public Use
  Company Number: None

PATIENT
  Age: 75 Year
  Sex: Female

DRUGS (1)
  1. REVLIMID [Suspect]
     Active Substance: LENALIDOMIDE
     Indication: PLASMA CELL MYELOMA
     Route: 048
     Dates: start: 20170526, end: 20201121

REACTIONS (6)
  - Sepsis [None]
  - Atrial fibrillation [None]
  - Enterovesical fistula [None]
  - Pneumomediastinum [None]
  - Hypoxia [None]
  - COVID-19 pneumonia [None]

NARRATIVE: CASE EVENT DATE: 20201205
